FAERS Safety Report 22592982 (Version 1)
Quarter: 2023Q2

REPORT INFORMATION
  Report Type: Report from Study
  Country: PL (occurrence: None)
  Receive Date: 20230613
  Receipt Date: 20230613
  Transmission Date: 20230722
  Serious: Yes (Death, Hospitalization)
  Sender: FDA-Public Use
  Company Number: PL-ROCHE-3317560

PATIENT
  Age: 66 Year
  Sex: Male

DRUGS (14)
  1. PLACEBO [Suspect]
     Active Substance: UNSPECIFIED INGREDIENT
     Indication: Diffuse large B-cell lymphoma
     Dosage: 1-14 DAYS AND 21-DAY CYCLE
     Route: 048
     Dates: start: 20160428, end: 20160716
  2. RITUXIMAB [Suspect]
     Active Substance: RITUXIMAB
     Indication: Diffuse large B-cell lymphoma
     Dosage: THE MOST RECENT CYCLE WAS STARTED ON 09JUN2016
     Route: 041
     Dates: start: 20160428, end: 20160716
  3. CYCLOPHOSPHAMIDE [Suspect]
     Active Substance: CYCLOPHOSPHAMIDE
     Indication: Diffuse large B-cell lymphoma
     Dosage: THE MOST RECENT CYCLE WAS STARTED ON 09JUN2016
     Route: 042
     Dates: start: 20160428, end: 20160716
  4. DOXORUBICIN [Suspect]
     Active Substance: DOXORUBICIN
     Indication: Diffuse large B-cell lymphoma
     Dosage: THE MOST RECENT CYCLE WAS STARTED ON 09JUN2016
     Route: 042
     Dates: start: 20160428, end: 20160716
  5. VINCRISTINE [Suspect]
     Active Substance: VINCRISTINE
     Indication: Diffuse large B-cell lymphoma
     Dosage: THE MOST RECENT CYCLE WAS STARTED ON 09JUN2016
     Route: 042
     Dates: start: 20160428, end: 20160716
  6. PREDNISONE [Suspect]
     Active Substance: PREDNISONE
     Indication: Diffuse large B-cell lymphoma
     Dosage: THE MOST RECENT CYCLE WAS STARTED ON 09JUN2016
     Route: 048
     Dates: start: 20160428, end: 20160716
  7. FINASTERIDE [Concomitant]
     Active Substance: FINASTERIDE
  8. DOXAZOSIN MESYLATE [Concomitant]
     Active Substance: DOXAZOSIN MESYLATE
  9. ASPIRIN [Concomitant]
     Active Substance: ASPIRIN
  10. ONDANSETRON [Concomitant]
     Active Substance: ONDANSETRON
  11. HYDROCORTISONE [Concomitant]
     Active Substance: HYDROCORTISONE
  12. ACETAMINOPHEN [Concomitant]
     Active Substance: ACETAMINOPHEN
  13. TAMSULOSIN HYDROCHLORIDE [Concomitant]
     Active Substance: TAMSULOSIN HYDROCHLORIDE
  14. GRANULOCYTE COLONY-STIMULATING FACTOR NOS [Concomitant]
     Active Substance: GRANULOCYTE COLONY-STIMULATING FACTOR NOS

REACTIONS (4)
  - Pneumonia [Recovered/Resolved]
  - Dehydration [Recovered/Resolved]
  - Anaemia [Recovered/Resolved]
  - Dyspnoea [Fatal]

NARRATIVE: CASE EVENT DATE: 20160623
